FAERS Safety Report 10815317 (Version 2)
Quarter: 2015Q3

REPORT INFORMATION
  Report Type: Report from Study
  Country: BR (occurrence: BR)
  Receive Date: 20150218
  Receipt Date: 20150828
  Transmission Date: 20151125
  Serious: Yes (Death, Hospitalization, Other)
  Sender: FDA-Public Use
  Company Number: PHHY2015BR018362

PATIENT
  Age: 85 Year
  Sex: Male
  Weight: 106 kg

DRUGS (1)
  1. EXELON PATCH [Suspect]
     Active Substance: RIVASTIGMINE
     Indication: DEMENTIA ALZHEIMER^S TYPE
     Dosage: PATCH (5CM2)
     Route: 062
     Dates: start: 201407, end: 201411

REACTIONS (12)
  - Lung disorder [Unknown]
  - Cough [Unknown]
  - Arthralgia [Unknown]
  - Lung neoplasm malignant [Unknown]
  - Renal impairment [Unknown]
  - Death [Fatal]
  - Infection [Unknown]
  - Renal disorder [Unknown]
  - Dyspnoea [Unknown]
  - Asthenia [Unknown]
  - Hip fracture [Unknown]
  - Pneumonia [Unknown]

NARRATIVE: CASE EVENT DATE: 20141204
